FAERS Safety Report 7347310-6 (Version None)
Quarter: 2011Q1

REPORT INFORMATION
  Report Type: 
  Country: None (occurrence: None)
  Receive Date: 20110311
  Receipt Date: 20110310
  Transmission Date: 20110831
  Serious: Yes (Other)
  Sender: FDA-Public Use
  Company Number: DE-ROCHE-737083

PATIENT
  Sex: Female

DRUGS (3)
  1. TRASTUZUMAB [Suspect]
     Indication: BREAST CANCER
     Dosage: LOADING DOSE
     Route: 042
     Dates: start: 20080215
  2. TRASTUZUMAB [Suspect]
     Dosage: FREQUENCY: EVERY 3 WEEKS FOR 52 WEEKS.
     Route: 042
  3. LAPATINIB [Suspect]
     Indication: BREAST CANCER
     Route: 048
     Dates: start: 20080215, end: 20081218

REACTIONS (1)
  - ALANINE AMINOTRANSFERASE INCREASED [None]
